FAERS Safety Report 11177338 (Version 2)
Quarter: 2016Q4

REPORT INFORMATION
  Report Type: Report from Study
  Country: GB (occurrence: GB)
  Receive Date: 20150610
  Receipt Date: 20161103
  Transmission Date: 20170206
  Serious: Yes (Life-Threatening, Hospitalization)
  Sender: FDA-Public Use
  Company Number: GB-MERCK-1506GBR004114

PATIENT
  Age: 55 Year
  Sex: Male

DRUGS (5)
  1. DEPO-MEDRONE [Concomitant]
     Active Substance: METHYLPREDNISOLONE
     Dosage: 120 MG, UNK
     Route: 030
     Dates: start: 20150602
  2. SALAZOPYRIN [Concomitant]
     Active Substance: SULFASALAZINE
     Indication: HYPOPHYSITIS
     Dosage: 500 MG, UNK
  3. PEMBROLIZUMAB. [Suspect]
     Active Substance: PEMBROLIZUMAB
     Indication: METASTATIC MALIGNANT MELANOMA
     Dosage: 150 MG, Q3W
     Route: 042
     Dates: start: 20141017
  4. PEMBROLIZUMAB. [Suspect]
     Active Substance: PEMBROLIZUMAB
     Dosage: 137.5MG
     Route: 042
     Dates: start: 20150617
  5. HYDROCORTISONE. [Concomitant]
     Active Substance: HYDROCORTISONE
     Indication: HYPOPHYSITIS
     Dosage: 10MG IN MORNING, 5MG BID

REACTIONS (2)
  - Type 1 diabetes mellitus [Not Recovered/Not Resolved]
  - Synovitis [Unknown]

NARRATIVE: CASE EVENT DATE: 20150603
